FAERS Safety Report 8374432-3 (Version None)
Quarter: 2012Q2

REPORT INFORMATION
  Report Type: 
  Country: None (occurrence: None)
  Receive Date: 20120521
  Receipt Date: 20120517
  Transmission Date: 20120825
  Serious: Yes (Other)
  Sender: FDA-Public Use
  Company Number: US-ABBOTT-12P-163-0936421-00

PATIENT
  Sex: Male
  Weight: 86.26 kg

DRUGS (10)
  1. LAMISIL [Suspect]
     Indication: ONYCHOMYCOSIS
     Dates: start: 20120201, end: 20120430
  2. LEXAPRO [Concomitant]
     Indication: DEPRESSION
     Dates: start: 20111201
  3. ASPIRIN [Concomitant]
     Indication: CORONARY ARTERIAL STENT INSERTION
     Dates: start: 20070101
  4. SIMVASTATIN [Concomitant]
     Indication: BLOOD CHOLESTEROL INCREASED
     Dates: start: 20120101
  5. FOSAMAX [Concomitant]
     Indication: OSTEOPOROSIS
     Dates: start: 20111201
  6. ANDROGEL [Suspect]
     Indication: BLOOD TESTOSTERONE DECREASED
  7. NASACORT AQ [Concomitant]
     Indication: MULTIPLE ALLERGIES
     Dates: start: 20110101
  8. ALLOPURINOL [Concomitant]
     Indication: GOUT
     Dates: start: 20111201
  9. CALCIUM CITRATE [Concomitant]
     Indication: OSTEOPOROSIS
     Dates: start: 20080101
  10. TESTIM [Suspect]
     Indication: BLOOD TESTOSTERONE DECREASED
     Dosage: 1-1/2 TUBES DAILY
     Route: 062
     Dates: start: 20120201

REACTIONS (5)
  - OEDEMA PERIPHERAL [None]
  - PERIPHERAL EMBOLISM [None]
  - ONYCHOMYCOSIS [None]
  - MENISCUS LESION [None]
  - BLOOD TESTOSTERONE DECREASED [None]
